FAERS Safety Report 5287797-6 (Version None)
Quarter: 2007Q2

REPORT INFORMATION
  Report Type: 
  Country: None (occurrence: None)
  Receive Date: 20070405
  Receipt Date: 20070327
  Transmission Date: 20071010
  Serious: Yes (Other)
  Sender: FDA-Public Use
  Company Number: PHEH2007US02864

PATIENT
  Sex: Female
  Weight: 83.9 kg

DRUGS (1)
  1. DIOVAN [Suspect]
     Indication: HYPERTENSION
     Dosage: 320 MG, QD
     Dates: start: 20060101, end: 20070301

REACTIONS (2)
  - BURNING SENSATION [None]
  - DIABETES MELLITUS [None]
